FAERS Safety Report 6762936-6 (Version None)
Quarter: 2010Q2

REPORT INFORMATION
  Report Type: 
  Country: None (occurrence: None)
  Receive Date: 20100609
  Receipt Date: 20100524
  Transmission Date: 20101027
  Serious: Yes (Hospitalization)
  Sender: FDA-Public Use
  Company Number: FR-PFIZER INC-2010064874

PATIENT
  Age: 77 Year
  Sex: Female

DRUGS (9)
  1. DILTIAZEM HCL [Suspect]
     Indication: HYPERTENSION
     Dosage: 300 MG, DAILY
     Route: 048
     Dates: start: 20091226, end: 20100201
  2. XALATAN [Suspect]
     Indication: GLAUCOMA
     Dosage: 1 DROP(S);DAILY
     Route: 047
     Dates: start: 20060101
  3. OLMETEC [Suspect]
     Indication: HYPERTENSION
     Dosage: 1 UNIT DAILY
     Route: 048
     Dates: start: 20091226, end: 20100201
  4. FLUDEX [Suspect]
     Indication: HYPERTENSION
     Dosage: UNK
     Route: 048
     Dates: start: 20091226, end: 20100103
  5. ESCITALOPRAM [Suspect]
     Indication: ANXIETY
     Dosage: UNK
     Route: 048
     Dates: start: 20091201, end: 20100103
  6. AZOPT [Suspect]
     Indication: GLAUCOMA
     Dosage: UNK
     Route: 047
     Dates: start: 20060101
  7. LEXOMIL [Suspect]
     Indication: ANXIETY
     Dosage: UNK
     Route: 048
     Dates: end: 20100201
  8. ESOMEPRAZOLE [Suspect]
     Dosage: UNK
     Route: 048
     Dates: end: 20100114
  9. CARDIOCALM [Suspect]
     Dosage: UNK;DAILY
     Route: 048
     Dates: end: 20091226

REACTIONS (3)
  - CONFUSIONAL STATE [None]
  - HYPOKALAEMIA [None]
  - HYPONATRAEMIA [None]
